FAERS Safety Report 21614234 (Version 1)
Quarter: 2022Q4

REPORT INFORMATION
  Report Type: Report from Study
  Country: PR (occurrence: PR)
  Receive Date: 20221118
  Receipt Date: 20221118
  Transmission Date: 20230112
  Serious: No
  Sender: FDA-Public Use
  Company Number: PR-ABBVIE-4171496

PATIENT
  Sex: Female
  Weight: 71.667 kg

DRUGS (3)
  1. RINVOQ [Suspect]
     Active Substance: UPADACITINIB
     Indication: Rheumatoid arthritis
     Route: 048
     Dates: start: 20220929
  2. BioNTech, Pfizer vaccine [Concomitant]
     Indication: COVID-19
     Dosage: 1ST DOSE
     Route: 030
     Dates: start: 20210821, end: 20210821
  3. BioNTech, Pfizer vaccine [Concomitant]
     Indication: COVID-19
     Dosage: 2ND DOSE
     Route: 030
     Dates: start: 20210911, end: 20210911

REACTIONS (1)
  - Limb injury [Recovered/Resolved]

NARRATIVE: CASE EVENT DATE: 20220901
